FAERS Safety Report 21786114 (Version 2)
Quarter: 2023Q1

REPORT INFORMATION
  Report Type: Spontaneous
  Country: US (occurrence: None)
  Receive Date: 20221228
  Receipt Date: 20230322
  Transmission Date: 20230418
  Serious: No
  Sender: FDA-Public Use
  Company Number: 2022A391802

PATIENT
  Sex: Male

DRUGS (2)
  1. BYDUREON BCISE [Suspect]
     Active Substance: EXENATIDE
     Route: 058
     Dates: start: 2022
  2. BYETTA [Concomitant]
     Active Substance: EXENATIDE
     Route: 058

REACTIONS (3)
  - Injection site indentation [Unknown]
  - Incorrect dose administered [Unknown]
  - Product use issue [Unknown]
